FAERS Safety Report 15046041 (Version 3)
Quarter: 2019Q2

REPORT INFORMATION
  Report Type: Spontaneous
  Country: US (occurrence: US)
  Receive Date: 20180621
  Receipt Date: 20190614
  Transmission Date: 20190711
  Serious: Yes (Other)
  Sender: FDA-Public Use
  Company Number: US-ENDO PHARMACEUTICALS INC-2018-039827

PATIENT
  Sex: Male
  Weight: 69.84 kg

DRUGS (4)
  1. OXYCODONE HYDROCHLORIDE. [Suspect]
     Active Substance: OXYCODONE HYDROCHLORIDE
     Indication: DYSTONIA
     Dosage: 30 MG, QID
     Route: 048
     Dates: start: 2012
  2. OXYCODONE HYDROCHLORIDE. [Suspect]
     Active Substance: OXYCODONE HYDROCHLORIDE
     Dosage: 30 MG, QID
     Route: 065
     Dates: end: 20181005
  3. OXYCODONE HYDROCHLORIDE. [Suspect]
     Active Substance: OXYCODONE HYDROCHLORIDE
     Indication: PAIN
     Dosage: 30 MG, UNKNOWN
     Route: 065
     Dates: start: 2010
  4. OXYCODONE HYDROCHLORIDE. [Suspect]
     Active Substance: OXYCODONE HYDROCHLORIDE
     Dosage: 30 MG, UNKNOWN
     Route: 065

REACTIONS (14)
  - Therapeutic response unexpected [Unknown]
  - Anxiety [Unknown]
  - Drug ineffective [Unknown]
  - Fear [Unknown]
  - Dizziness [Unknown]
  - Product availability issue [Unknown]
  - Memory impairment [Unknown]
  - Malaise [Unknown]
  - Euphoric mood [Unknown]
  - Quality of life decreased [Unknown]
  - Seizure [Unknown]
  - Intervertebral disc protrusion [Not Recovered/Not Resolved]
  - Drug dependence [Unknown]
  - Pain [Unknown]
